FAERS Safety Report 10842444 (Version 2)
Quarter: 2015Q1

REPORT INFORMATION
  Report Type: Spontaneous
  Country: FR (occurrence: FR)
  Receive Date: 20150220
  Receipt Date: 20150316
  Transmission Date: 20150721
  Serious: Yes (Hospitalization)
  Sender: FDA-Public Use
  Company Number: FR-TEVA-540605ISR

PATIENT
  Age: 18 Year
  Sex: Female

DRUGS (1)
  1. LEELOO 0.1 MG/ 0.02 MG [Suspect]
     Active Substance: ETHINYL ESTRADIOL\LEVONORGESTREL
     Indication: ORAL CONTRACEPTION
     Dosage: 1 DOSAGE FORMS DAILY;
     Route: 048
     Dates: start: 2014, end: 20150125

REACTIONS (3)
  - Abdominal pain upper [Recovering/Resolving]
  - Burn oesophageal [Recovering/Resolving]
  - Pancreatitis acute [Recovered/Resolved]

NARRATIVE: CASE EVENT DATE: 20150109
